FAERS Safety Report 17863276 (Version 9)
Quarter: 2020Q4

REPORT INFORMATION
  Report Type: Other
  Country: DE (occurrence: DE)
  Receive Date: 20200605
  Receipt Date: 20201210
  Transmission Date: 20210113
  Serious: Yes (Hospitalization, Other)
  Sender: FDA-Public Use
  Company Number: DE-ROCHE-2610228

PATIENT
  Age: 68 Year
  Sex: Female
  Weight: 87 kg

DRUGS (20)
  1. ROACTEMRA [Suspect]
     Active Substance: TOCILIZUMAB
     Indication: GIANT CELL ARTERITIS
     Route: 058
     Dates: start: 20200518, end: 20200622
  2. ROACTEMRA [Suspect]
     Active Substance: TOCILIZUMAB
     Route: 058
  3. EUTHYROX [Concomitant]
     Active Substance: LEVOTHYROXINE SODIUM
     Route: 065
  4. PREDNISOLONE. [Concomitant]
     Active Substance: PREDNISOLONE
  5. TORASEMIDE [Concomitant]
     Active Substance: TORSEMIDE
  6. ROACTEMRA [Suspect]
     Active Substance: TOCILIZUMAB
     Route: 058
     Dates: start: 20201014
  7. CORTISONE [Suspect]
     Active Substance: CORTISONE
     Indication: GIANT CELL ARTERITIS
     Route: 065
     Dates: start: 20200406
  8. ROACTEMRA [Suspect]
     Active Substance: TOCILIZUMAB
     Indication: RHEUMATOID ARTHRITIS
     Route: 058
     Dates: start: 20200525, end: 20200629
  9. ROACTEMRA [Suspect]
     Active Substance: TOCILIZUMAB
     Indication: GIANT CELL ARTERITIS
     Route: 042
     Dates: start: 20200406, end: 20200504
  10. PREDNISOLONE. [Concomitant]
     Active Substance: PREDNISOLONE
     Route: 065
  11. PREDNISOLONE. [Concomitant]
     Active Substance: PREDNISOLONE
  12. ALENDRONIC ACID [Concomitant]
     Active Substance: ALENDRONIC ACID
  13. RAMIPRIL. [Concomitant]
     Active Substance: RAMIPRIL
  14. PANTOPRAZOLE [Concomitant]
     Active Substance: PANTOPRAZOLE
  15. URSOFALK [Concomitant]
     Active Substance: URSODIOL
  16. CORTISONE [Suspect]
     Active Substance: CORTISONE
     Route: 065
     Dates: start: 2020
  17. PREDNISOLONE. [Concomitant]
     Active Substance: PREDNISOLONE
     Route: 065
  18. PREDNISOLONE. [Concomitant]
     Active Substance: PREDNISOLONE
  19. METFORMIN [Concomitant]
     Active Substance: METFORMIN HYDROCHLORIDE
  20. TORASEMIDE [Concomitant]
     Active Substance: TORSEMIDE
     Dosage: 5 MG (0.5-0-0)

REACTIONS (41)
  - Aggression [Recovered/Resolved]
  - Biliary dilatation [Unknown]
  - Vasoconstriction [Not Recovered/Not Resolved]
  - Nasopharyngitis [Not Recovered/Not Resolved]
  - Injection site haemorrhage [Recovered/Resolved]
  - Injection site pruritus [Recovered/Resolved]
  - Gait disturbance [Recovered/Resolved]
  - Full blood count decreased [Not Recovered/Not Resolved]
  - Dizziness [Recovered/Resolved]
  - Headache [Not Recovered/Not Resolved]
  - C-reactive protein increased [Not Recovered/Not Resolved]
  - Pruritus [Recovered/Resolved]
  - Toothache [Recovered/Resolved]
  - Infection [Unknown]
  - Injection site erythema [Recovered/Resolved]
  - Pneumonitis [Not Recovered/Not Resolved]
  - Gamma-glutamyltransferase increased [Recovering/Resolving]
  - Computerised tomogram liver abnormal [Not Recovered/Not Resolved]
  - Aneurysm [Not Recovered/Not Resolved]
  - Fluid retention [Not Recovered/Not Resolved]
  - Blood creatinine decreased [Not Recovered/Not Resolved]
  - Dizziness [Unknown]
  - Pulmonary function test abnormal [Recovered/Resolved]
  - Hypertension [Recovered/Resolved]
  - Intra-abdominal haematoma [Recovered/Resolved]
  - Visual impairment [Not Recovered/Not Resolved]
  - Weight increased [Not Recovered/Not Resolved]
  - Violence-related symptom [Recovered/Resolved]
  - Tumour marker increased [Not Recovered/Not Resolved]
  - Pain [Not Recovered/Not Resolved]
  - Sensitive skin [Unknown]
  - Hyperhidrosis [Not Recovered/Not Resolved]
  - Alanine aminotransferase increased [Recovering/Resolving]
  - Blood glucose increased [Not Recovered/Not Resolved]
  - Hypotension [Recovered/Resolved]
  - Dyspnoea [Recovering/Resolving]
  - Injection site pain [Not Recovered/Not Resolved]
  - Abnormal sensation in eye [Recovering/Resolving]
  - General physical health deterioration [Unknown]
  - Aspartate aminotransferase increased [Recovering/Resolving]
  - Hepatotoxicity [Not Recovered/Not Resolved]

NARRATIVE: CASE EVENT DATE: 2020
